FAERS Safety Report 9162839 (Version 1)
Quarter: 2013Q1

REPORT INFORMATION
  Report Type: Report from Study
  Country: GB (occurrence: GB)
  Receive Date: 20130314
  Receipt Date: 20130314
  Transmission Date: 20140127
  Serious: Yes (Death, Other)
  Sender: FDA-Public Use
  Company Number: GB-CELGENEUS-167-C4047-11040020

PATIENT
  Age: 62 Year
  Sex: Female
  Weight: 95 kg

DRUGS (8)
  1. CC-4047 [Suspect]
     Indication: PLASMA CELL MYELOMA
     Dosage: 4 MILLIGRAM
     Route: 048
     Dates: start: 20110321, end: 20110330
  2. NITROFURANTOIN [Suspect]
     Indication: URINARY TRACT INFECTION
     Dosage: 200 MILLIGRAM
     Route: 065
     Dates: start: 20110326, end: 20110330
  3. CARBOCISTEINE [Concomitant]
     Indication: BRONCHIECTASIS
     Dosage: 1125 MILLIGRAM
     Route: 065
  4. PREGABALIN [Concomitant]
     Indication: NEUROPATHY PERIPHERAL
     Dosage: 250 MILLIGRAM
     Route: 065
  5. OXYCONTIN [Concomitant]
     Indication: NEUROPATHY PERIPHERAL
     Dosage: 20 MILLIGRAM
     Route: 065
  6. FENTANYL [Concomitant]
     Indication: NEUROPATHY PERIPHERAL
     Dosage: 8.3333 MICROGRAM
     Route: 062
  7. ADCAL D3 [Concomitant]
     Indication: BLOOD CALCIUM DECREASED
     Dosage: 4 TABLET
     Route: 048
  8. MAGNESIUM [Concomitant]
     Indication: BLOOD MAGNESIUM DECREASED
     Dosage: 6 TABLET
     Route: 048

REACTIONS (4)
  - Plasma cell myeloma [Fatal]
  - Multi-organ failure [Fatal]
  - Blood creatinine increased [Not Recovered/Not Resolved]
  - Urinary tract infection [Recovered/Resolved]
